FAERS Safety Report 13105366 (Version 4)
Quarter: 2017Q1

REPORT INFORMATION
  Report Type: Report from Study
  Country: None (occurrence: US)
  Receive Date: 20170111
  Receipt Date: 20170315
  Transmission Date: 20170428
  Serious: Yes (Other)
  Sender: FDA-Public Use
  Company Number: US-ABBVIE-17P-163-1834816-00

PATIENT
  Age: 34 Year
  Sex: Female

DRUGS (8)
  1. LEVOTHYROXINE. [Concomitant]
     Active Substance: LEVOTHYROXINE
     Indication: HYPOTHYROIDISM
  2. LUPRON [Suspect]
     Active Substance: LEUPROLIDE ACETATE
     Route: 030
     Dates: start: 201612
  3. OMEPRAZOLE. [Concomitant]
     Active Substance: OMEPRAZOLE
     Indication: GASTROOESOPHAGEAL REFLUX DISEASE
  4. LUPRON [Suspect]
     Active Substance: LEUPROLIDE ACETATE
     Indication: ENDOMETRIOSIS
     Dosage: FOR SIX MONTHS
     Route: 030
     Dates: start: 201101, end: 201107
  5. LUPRON [Suspect]
     Active Substance: LEUPROLIDE ACETATE
     Dosage: FOR SIX MONTHS
     Route: 030
     Dates: start: 201311, end: 201405
  6. WELLBUTRIN [Concomitant]
     Active Substance: BUPROPION HYDROCHLORIDE
     Indication: DEPRESSION
  7. CALCIUM [Concomitant]
     Active Substance: CALCIUM
     Indication: MINERAL SUPPLEMENTATION
  8. WOMEN^S MULTI [Concomitant]
     Indication: VITAMIN SUPPLEMENTATION

REACTIONS (4)
  - Endometriosis [Not Recovered/Not Resolved]
  - Gingival recession [Recovered/Resolved]
  - Hiatus hernia [Not Recovered/Not Resolved]
  - Chest pain [Recovered/Resolved]

NARRATIVE: CASE EVENT DATE: 201101
